FAERS Safety Report 10874319 (Version 1)
Quarter: 2015Q1

REPORT INFORMATION
  Report Type: Spontaneous
  Country: US (occurrence: US)
  Receive Date: 20150227
  Receipt Date: 20150227
  Transmission Date: 20150721
  Serious: No
  Sender: FDA-Public Use
  Company Number: US-HORIZON-VIM-0122-2014

PATIENT
  Age: 54 Year
  Sex: Female

DRUGS (12)
  1. HCTZ [Concomitant]
     Active Substance: HYDROCHLOROTHIAZIDE
     Dosage: 25MG TABLETS, HALF A TABLET THREE TIMES A WEEK
  2. MEDROXYPROGESTERONE [Concomitant]
     Active Substance: MEDROXYPROGESTERONE
  3. OXYCODONE [Concomitant]
     Active Substance: OXYCODONE
  4. POTASSIUM CL [Concomitant]
     Active Substance: POTASSIUM CHLORIDE
  5. AMITIZIA [Concomitant]
  6. SIMVASTATIN. [Concomitant]
     Active Substance: SIMVASTATIN
  7. AMITRIPTYLINE [Concomitant]
     Active Substance: AMITRIPTYLINE
  8. BACLOFEN. [Concomitant]
     Active Substance: BACLOFEN
  9. NEXIUM [Concomitant]
     Active Substance: ESOMEPRAZOLE MAGNESIUM
  10. ALORA [Concomitant]
     Active Substance: ESTRADIOL
     Route: 003
  11. VIMOVO [Suspect]
     Active Substance: ESOMEPRAZOLE MAGNESIUM\NAPROXEN
     Indication: PAIN IN EXTREMITY
     Dosage: 375/20MG
     Dates: start: 20141219
  12. DILTIAZEM XR [Concomitant]
     Active Substance: DILTIAZEM

REACTIONS (2)
  - Depression [Unknown]
  - Abdominal pain lower [Unknown]

NARRATIVE: CASE EVENT DATE: 20141226
